FAERS Safety Report 15830188 (Version 1)
Quarter: 2019Q1

REPORT INFORMATION
  Report Type: Spontaneous
  Country: US (occurrence: US)
  Receive Date: 20190115
  Receipt Date: 20190115
  Transmission Date: 20190417
  Serious: Yes (Other)
  Sender: FDA-Public Use
  Company Number: US-REGENERON PHARMACEUTICALS, INC.-2018-27074

PATIENT

DRUGS (2)
  1. EYLEA [Suspect]
     Active Substance: AFLIBERCEPT
     Indication: DIABETIC RETINOPATHY
     Dosage: 0.05 ML, UNK
     Route: 031
     Dates: start: 20161010
  2. EYLEA [Suspect]
     Active Substance: AFLIBERCEPT
     Dosage: 0.05 ML, BILATERAL, LAST DOSE
     Route: 031
     Dates: start: 20180620, end: 20180620

REACTIONS (1)
  - Iridocyclitis [Recovered/Resolved]

NARRATIVE: CASE EVENT DATE: 20180620
